FAERS Safety Report 5938123-8 (Version None)
Quarter: 2008Q4

REPORT INFORMATION
  Report Type: 
  Country: None (occurrence: None)
  Receive Date: 20081031
  Receipt Date: 20081020
  Transmission Date: 20090506
  Serious: Yes (Life-Threatening, Other)
  Sender: FDA-Public Use
  Company Number: US-PFIZER INC-2008088620

PATIENT
  Sex: Male
  Weight: 100 kg

DRUGS (5)
  1. CHANTIX [Suspect]
     Indication: SMOKING CESSATION THERAPY
     Dates: start: 20080901
  2. ETHANOL [Suspect]
  3. XANAX [Concomitant]
     Indication: ANXIETY
  4. LEXAPRO [Concomitant]
     Indication: ANXIETY
  5. TOPROL-XL [Concomitant]
     Indication: HYPERTENSION

REACTIONS (3)
  - ACCIDENT [None]
  - BLOOD ALCOHOL INCREASED [None]
  - LOSS OF CONSCIOUSNESS [None]
